FAERS Safety Report 24431906 (Version 2)
Quarter: 2025Q3

REPORT INFORMATION
  Report Type: Spontaneous
  Country: CA (occurrence: None)
  Receive Date: 20241014
  Receipt Date: 20250724
  Transmission Date: 20251020
  Serious: Yes (Hospitalization, Other)
  Sender: ORION
  Company Number: CA-PFIZER INC-202400267903

PATIENT
  Age: 26 Year
  Sex: Male

DRUGS (7)
  1. METHOTREXATE [Suspect]
     Active Substance: METHOTREXATE
     Indication: Crohn^s disease
     Dosage: STRENGTH: 12.5 MG
     Dates: start: 2012, end: 2025
  2. REMICADE [Concomitant]
     Active Substance: INFLIXIMAB
     Dates: start: 202103
  3. FOLIC ACID [Concomitant]
     Active Substance: FOLIC ACID
  4. STRATTERA [Concomitant]
     Active Substance: ATOMOXETINE HYDROCHLORIDE
  5. DAYVIGO [Concomitant]
     Active Substance: LEMBOREXANT
  6. INFLIXIMAB [Concomitant]
     Active Substance: INFLIXIMAB
  7. INFLIXIMAB [Concomitant]
     Active Substance: INFLIXIMAB

REACTIONS (7)
  - Crohn^s disease [Unknown]
  - Anal abscess [Recovered/Resolved]
  - Intestinal obstruction [Unknown]
  - Product use in unapproved indication [Unknown]
  - Weight decreased [Unknown]
  - Serum ferritin decreased [Unknown]
  - Blood creatinine increased [Unknown]

NARRATIVE: CASE EVENT DATE: 20250101
